FAERS Safety Report 5641737-6 (Version None)
Quarter: 2008Q1

REPORT INFORMATION
  Report Type: 
  Country: None (occurrence: None)
  Receive Date: 20080131
  Receipt Date: 20071126
  Transmission Date: 20080703
  Serious: Yes (Hospitalization)
  Sender: FDA-Public Use
  Company Number: 163-21880-07110135

PATIENT
  Age: 73 Year
  Sex: Female

DRUGS (14)
  1. REVLIMID [Suspect]
     Indication: MULTIPLE MYELOMA
     Dosage: 15 MG, QD X21 DAYS, ORAL
     Route: 048
     Dates: start: 20071011
  2. ZOMETA [Concomitant]
  3. DECADRON [Concomitant]
  4. ASPIRIN [Concomitant]
  5. HYZAAR [Concomitant]
  6. SYNTHROID [Concomitant]
  7. ZOCOR [Concomitant]
  8. NORVASC [Concomitant]
  9. COREG [Concomitant]
  10. CITRACAL (CALCIUM CITRATE) [Concomitant]
  11. VITAMIN E [Concomitant]
  12. UNICAP (UNICAP) [Concomitant]
  13. FOSAMAX [Concomitant]
  14. SKELAXIN [Concomitant]

REACTIONS (6)
  - DEHYDRATION [None]
  - DIARRHOEA [None]
  - DRY SKIN [None]
  - HYPERTENSION [None]
  - LIVER FUNCTION TEST ABNORMAL [None]
  - OEDEMA PERIPHERAL [None]
